FAERS Safety Report 7374187-5 (Version None)
Quarter: 2011Q1

REPORT INFORMATION
  Report Type: 
  Country: None (occurrence: None)
  Receive Date: 20110325
  Receipt Date: 20110322
  Transmission Date: 20110831
  Serious: No
  Sender: FDA-Public Use
  Company Number: US-PFIZER INC-2011047377

PATIENT
  Sex: Female
  Weight: 97.052 kg

DRUGS (6)
  1. DIFFERIN [Concomitant]
     Indication: ACNE
     Dosage: 0.1 %, 1X/DAY
     Route: 061
  2. NEXIUM [Concomitant]
     Indication: GASTROOESOPHAGEAL REFLUX DISEASE
     Dosage: 40 MG, 1X/DAY
     Route: 048
  3. VITAMIN B-12 [Concomitant]
     Indication: VITAMIN B12 DEFICIENCY
     Dosage: 1000 UG, 1X/DAY
     Route: 048
  4. AUGMENTIN [Concomitant]
     Indication: SINUSITIS
     Dosage: UNK
  5. MEDROXYPROGESTERONE ACETATE [Suspect]
     Indication: CONTRACEPTION
     Dosage: UNK
  6. OMNICEF [Concomitant]
     Indication: SINUSITIS
     Dosage: UNK

REACTIONS (2)
  - METRORRHAGIA [None]
  - INCORRECT DOSE ADMINISTERED [None]
